FAERS Safety Report 9077735 (Version 1)
Quarter: 2013Q1

REPORT INFORMATION
  Report Type: Report from Study
  Country: US (occurrence: US)
  Receive Date: 20130130
  Receipt Date: 20130130
  Transmission Date: 20140127
  Serious: No
  Sender: FDA-Public Use
  Company Number: US-ABBOTT-12P-163-0975677-00

PATIENT
  Sex: Male

DRUGS (4)
  1. HUMIRA [Suspect]
     Indication: CROHN^S DISEASE
     Route: 058
     Dates: start: 201205
  2. TRAMADOL [Concomitant]
     Indication: PAIN
  3. LOSARTAN [Concomitant]
     Indication: BLOOD PRESSURE
  4. PENTASA [Concomitant]
     Indication: ARTHRALGIA

REACTIONS (3)
  - Fatigue [Unknown]
  - Arthralgia [Not Recovered/Not Resolved]
  - Injection site erythema [Recovered/Resolved]
